FAERS Safety Report 11590867 (Version 1)
Quarter: 2015Q4

REPORT INFORMATION
  Report Type: Spontaneous
  Country: CA (occurrence: CA)
  Receive Date: 20151002
  Receipt Date: 20151002
  Transmission Date: 20160304
  Serious: Yes (Disabling)
  Sender: FDA-Public Use
  Company Number: CA-CONCORDIA PHARMACEUTICALS INC.-CO-PL-CA-2015-285

PATIENT
  Sex: Female

DRUGS (6)
  1. LYRICA [Concomitant]
     Active Substance: PREGABALIN
  2. PREDNISONE. [Concomitant]
     Active Substance: PREDNISONE
     Dates: start: 2013
  3. ENBREL [Concomitant]
     Active Substance: ETANERCEPT
     Dates: end: 20150904
  4. PLAQUENIL [Concomitant]
     Active Substance: HYDROXYCHLOROQUINE SULFATE
  5. METHOTREXATE [Concomitant]
     Active Substance: METHOTREXATE
     Dates: start: 201309, end: 2014
  6. HYDROXYCHLOROQUINE SULFATE. [Suspect]
     Active Substance: HYDROXYCHLOROQUINE SULFATE
     Indication: RHEUMATOID ARTHRITIS
     Dates: start: 201307

REACTIONS (2)
  - Pain [Unknown]
  - Disability [Unknown]
